FAERS Safety Report 13287971 (Version 1)
Quarter: 2017Q1

REPORT INFORMATION
  Report Type: Spontaneous
  Country: US (occurrence: US)
  Receive Date: 20170302
  Receipt Date: 20170302
  Transmission Date: 20170428
  Serious: Yes (Other)
  Sender: FDA-Public Use
  Company Number: US-BEH-2017078439

PATIENT
  Age: 51 Year
  Sex: Female

DRUGS (1)
  1. HUMATE-P [Suspect]
     Active Substance: HUMAN COAGULATION FACTOR VIII/VON WILLEBRAND FACTOR COMPLEX
     Indication: VON WILLEBRAND^S DISEASE
     Dosage: 4000 IU, QD
     Route: 042
     Dates: start: 20140121

REACTIONS (3)
  - Mouth haemorrhage [Unknown]
  - Wrist surgery [Unknown]
  - Tooth fracture [Unknown]

NARRATIVE: CASE EVENT DATE: 201609
